FAERS Safety Report 8564870-8 (Version None)
Quarter: 2012Q3

REPORT INFORMATION
  Report Type: 
  Country: None (occurrence: None)
  Receive Date: 20120803
  Receipt Date: 20120621
  Transmission Date: 20120928
  Serious: No
  Sender: FDA-Public Use
  Company Number: US-GLAXOSMITHKLINE-A0981967A

PATIENT
  Age: 72 Year
  Sex: Female

DRUGS (5)
  1. CARBATROL [Concomitant]
  2. HORIZANT [Suspect]
     Indication: RESTLESS LEGS SYNDROME
     Dosage: 600MG PER DAY
     Route: 048
     Dates: start: 20120611
  3. UNSPECIFIED MEDICATION [Suspect]
     Indication: EPILEPSY
     Route: 065
  4. RALOXIFENE HYDROCHLORIDE [Concomitant]
  5. LISINOPRIL [Concomitant]

REACTIONS (6)
  - STRABISMUS [None]
  - VISUAL IMPAIRMENT [None]
  - FEELING ABNORMAL [None]
  - IMPAIRED DRIVING ABILITY [None]
  - DRUG INTERACTION [None]
  - ACCIDENTAL OVERDOSE [None]
